FAERS Safety Report 7341583-1 (Version None)
Quarter: 2011Q1

REPORT INFORMATION
  Report Type: 
  Country: None (occurrence: None)
  Receive Date: 20110309
  Receipt Date: 20110304
  Transmission Date: 20110831
  Serious: Yes (Life-Threatening, Hospitalization, Other)
  Sender: FDA-Public Use
  Company Number: US-PFIZER INC-2010175719

PATIENT
  Sex: Male

DRUGS (2)
  1. DIAZEPAM [Concomitant]
     Indication: ANXIETY
     Dosage: UNK
     Dates: start: 20071001, end: 20101101
  2. CHANTIX [Suspect]
     Indication: SMOKING CESSATION THERAPY
     Dosage: 0.5 MG, DAILY
     Dates: start: 20061221, end: 20101201

REACTIONS (13)
  - COMA [None]
  - INTENTIONAL OVERDOSE [None]
  - DEPRESSION [None]
  - SUICIDE ATTEMPT [None]
  - MYOCARDIAL INFARCTION [None]
  - POST GASTRIC SURGERY SYNDROME [None]
  - BRAIN INJURY [None]
  - RESPIRATORY FAILURE [None]
  - HYPOXIA [None]
  - ANXIETY [None]
  - MENTAL STATUS CHANGES [None]
  - AMNESIA [None]
  - CONVULSION [None]
